FAERS Safety Report 7522346-0 (Version None)
Quarter: 2011Q2

REPORT INFORMATION
  Report Type: 
  Country: None (occurrence: None)
  Receive Date: 20110603
  Receipt Date: 20110527
  Transmission Date: 20111010
  Serious: Yes (Hospitalization)
  Sender: FDA-Public Use
  Company Number: PHHY2011BR46244

PATIENT
  Age: 79 Year
  Sex: Male

DRUGS (1)
  1. FORMOTEROL FUMARATE [Suspect]

REACTIONS (4)
  - MALAISE [None]
  - FATIGUE [None]
  - SYNCOPE [None]
  - DYSPNOEA [None]
